FAERS Safety Report 13422550 (Version 2)
Quarter: 2017Q2

REPORT INFORMATION
  Report Type: Spontaneous
  Country: US (occurrence: US)
  Receive Date: 20170410
  Receipt Date: 20170512
  Transmission Date: 20170830
  Serious: No
  Sender: FDA-Public Use
  Company Number: US-GLAXOSMITHKLINE-US2017049871

PATIENT
  Sex: Female

DRUGS (1)
  1. VENTOLIN HFA [Suspect]
     Active Substance: ALBUTEROL SULFATE
     Indication: ASTHMA
     Dosage: UNK UNK, PRN
     Route: 055

REACTIONS (7)
  - Influenza [Unknown]
  - Asthma [Unknown]
  - Viral infection [Unknown]
  - Pyrexia [Unknown]
  - Drug ineffective [Unknown]
  - Cough [Unknown]
  - Product quality issue [Unknown]
